FAERS Safety Report 6699005-X (Version None)
Quarter: 2010Q2

REPORT INFORMATION
  Report Type: 
  Country: None (occurrence: None)
  Receive Date: 20100427
  Receipt Date: 20100414
  Transmission Date: 20101027
  Serious: Yes (Other)
  Sender: FDA-Public Use
  Company Number: GB-WATSON-2010-05488

PATIENT

DRUGS (12)
  1. CIPROFLOXACIN HCL [Suspect]
     Indication: CHRONIC OBSTRUCTIVE PULMONARY DISEASE
     Dosage: 50 MG, BID
     Route: 048
     Dates: start: 20100318, end: 20100326
  2. CLARITHROMYCIN [Concomitant]
     Indication: DRUG USE FOR UNKNOWN INDICATION
  3. DIDRONEL PMO [Concomitant]
     Indication: DRUG USE FOR UNKNOWN INDICATION
  4. FLUCONAZOLE [Concomitant]
     Indication: DRUG USE FOR UNKNOWN INDICATION
  5. IPRATROPIUM BROMIDE [Concomitant]
     Indication: DRUG USE FOR UNKNOWN INDICATION
  6. METFORMIN W/ROSIGLITAZONE [Concomitant]
     Indication: DRUG USE FOR UNKNOWN INDICATION
  7. MORPHINE [Concomitant]
     Indication: DRUG USE FOR UNKNOWN INDICATION
  8. PREDNISOLONE [Concomitant]
     Indication: DRUG USE FOR UNKNOWN INDICATION
  9. SALBUTAMOL [Concomitant]
     Indication: DRUG USE FOR UNKNOWN INDICATION
  10. SERETIDE                           /01420901/ [Concomitant]
     Indication: DRUG USE FOR UNKNOWN INDICATION
  11. UNIPHYL [Concomitant]
     Indication: DRUG USE FOR UNKNOWN INDICATION
  12. ZOPICLONE [Concomitant]
     Indication: DRUG USE FOR UNKNOWN INDICATION

REACTIONS (5)
  - ABASIA [None]
  - ARTHRALGIA [None]
  - BALANCE DISORDER [None]
  - PAIN [None]
  - TENDONITIS [None]
